FAERS Safety Report 8911837 (Version 2)
Quarter: 2013Q1

REPORT INFORMATION
  Report Type: Report from Study
  Country: DE (occurrence: DE)
  Receive Date: 20121115
  Receipt Date: 20130319
  Transmission Date: 20140127
  Serious: Yes (Death)
  Sender: FDA-Public Use
  Company Number: DE-ROCHE-1155575

PATIENT
  Sex: Female
  Weight: 72 kg

DRUGS (2)
  1. TRASTUZUMAB [Suspect]
     Indication: BREAST CANCER
     Route: 065
  2. CAPECITABINE [Suspect]
     Indication: BREAST CANCER
     Route: 048
     Dates: start: 20120621, end: 20120712

REACTIONS (4)
  - Local swelling [Fatal]
  - Ocular icterus [Fatal]
  - General physical health deterioration [Fatal]
  - Hepatic function abnormal [Fatal]
